FAERS Safety Report 8252526-0 (Version None)
Quarter: 2012Q2

REPORT INFORMATION
  Report Type: 
  Country: None (occurrence: None)
  Receive Date: 20120402
  Receipt Date: 20110329
  Transmission Date: 20120825
  Serious: No
  Sender: FDA-Public Use
  Company Number: US-ABBOTT-11P-163-0804364-00

PATIENT
  Sex: Male
  Weight: 81.818 kg

DRUGS (4)
  1. TESTOSTERONE [Suspect]
     Indication: BLOOD TESTOSTERONE DECREASED
  2. TESTOSTERONE [Suspect]
     Indication: ASTHENIA
     Dosage: DAILY DOSE: 2.5 GRAM(S)
     Route: 062
     Dates: start: 20110101
  3. TESTOSTERONE [Suspect]
     Indication: LOSS OF LIBIDO
  4. AMILORIDE [Concomitant]
     Indication: HYPERTENSION
     Dosage: DAILY DOSE: 5/50 MILLIGRAM (S) DAILY
     Route: 065

REACTIONS (1)
  - DRUG INEFFECTIVE [None]
